FAERS Safety Report 5171844-6 (Version None)
Quarter: 2006Q4

REPORT INFORMATION
  Report Type: 
  Country: None (occurrence: None)
  Receive Date: 20061213
  Receipt Date: 20020121
  Transmission Date: 20070319
  Serious: Yes (Hospitalization)
  Sender: FDA-Public Use
  Company Number: US-BRISTOL-MYERS SQUIBB COMPANY-11678117

PATIENT
  Age: 6 Month
  Sex: Male

DRUGS (5)
  1. ZERIT [Suspect]
     Route: 064
  2. VIDEX [Suspect]
     Route: 064
  3. RETROVIR [Suspect]
     Route: 064
  4. EPIVIR [Suspect]
     Route: 048
  5. RETROVIR [Suspect]
     Route: 048

REACTIONS (9)
  - ALBINISM [None]
  - DRUG EXPOSURE DURING PREGNANCY [None]
  - ELECTROENCEPHALOGRAM ABNORMAL [None]
  - NEONATAL DISORDER [None]
  - NYSTAGMUS [None]
  - PREGNANCY [None]
  - STREPTOCOCCAL INFECTION [None]
  - TWIN PREGNANCY [None]
  - URINARY TRACT INFECTION [None]
